FAERS Safety Report 4427326-X (Version None)
Quarter: 2004Q3

REPORT INFORMATION
  Report Type: 
  Country: None (occurrence: None)
  Receive Date: 20040813
  Receipt Date: 20040813
  Transmission Date: 20050211
  Serious: Yes (Other)
  Sender: FDA-Public Use
  Company Number: None

PATIENT
  Sex: Female
  Weight: 58.9676 kg

DRUGS (2)
  1. PAXIL [Suspect]
     Indication: ANXIETY
     Dosage: 25 MG ONCE DAILY ORAL
     Route: 048
     Dates: start: 20030501, end: 20040801
  2. PAXIL [Suspect]
     Indication: DEPRESSION
     Dosage: 25 MG ONCE DAILY ORAL
     Route: 048
     Dates: start: 20030501, end: 20040801

REACTIONS (6)
  - DRUG WITHDRAWAL SYNDROME [None]
  - HOT FLUSH [None]
  - NERVOUS SYSTEM DISORDER [None]
  - PAROSMIA [None]
  - STOMACH DISCOMFORT [None]
  - WEIGHT INCREASED [None]
